FAERS Safety Report 9358862 (Version 2)
Quarter: 2013Q3

REPORT INFORMATION
  Report Type: Spontaneous
  Country: US (occurrence: US)
  Receive Date: 20130620
  Receipt Date: 20130801
  Transmission Date: 20140515
  Serious: Yes (Hospitalization, Other)
  Sender: FDA-Public Use
  Company Number: US-ABBOTT-13P-163-1106438-00

PATIENT
  Age: 69 Year
  Sex: Male

DRUGS (3)
  1. DEPAKOTE [Suspect]
     Indication: PRODUCT USED FOR UNKNOWN INDICATION
     Route: 048
     Dates: start: 20130530, end: 201306
  2. DEPAKOTE [Suspect]
     Route: 048
     Dates: start: 201306, end: 20130615
  3. RITALIN [Concomitant]
     Indication: PRODUCT USED FOR UNKNOWN INDICATION

REACTIONS (2)
  - Delirium [Recovered/Resolved]
  - Ammonia increased [Recovered/Resolved]
